FAERS Safety Report 21445971 (Version 1)
Quarter: 2022Q4

REPORT INFORMATION
  Report Type: Spontaneous
  Country: CN (occurrence: CN)
  Receive Date: 20221012
  Receipt Date: 20221012
  Transmission Date: 20230113
  Serious: Yes (Hospitalization)
  Sender: FDA-Public Use
  Company Number: CN-NOVARTISPH-NVSC2022CN225273

PATIENT
  Age: 61 Year
  Sex: Female
  Weight: 40 kg

DRUGS (1)
  1. VORICONAZOLE [Suspect]
     Active Substance: VORICONAZOLE
     Indication: Pneumonia
     Dosage: 400 MG, BID
     Route: 048
     Dates: start: 20220925, end: 20220925

REACTIONS (7)
  - Visual impairment [Recovering/Resolving]
  - Blindness transient [Unknown]
  - Pyrexia [Unknown]
  - Chills [Unknown]
  - Nausea [Unknown]
  - Asthenia [Unknown]
  - Vision blurred [Unknown]

NARRATIVE: CASE EVENT DATE: 20220925
